FAERS Safety Report 4355387-5 (Version None)
Quarter: 2004Q2

REPORT INFORMATION
  Report Type: 
  Country: None (occurrence: None)
  Receive Date: 20040505
  Receipt Date: 20040426
  Transmission Date: 20050107
  Serious: No
  Sender: FDA-Public Use
  Company Number: 2004CG00799

PATIENT
  Age: 71 Year
  Sex: Male

DRUGS (5)
  1. CRESTOR [Suspect]
     Dosage: 20 MG QD; PO
     Route: 048
     Dates: start: 20040329
  2. ISOPTIN TAB [Suspect]
     Dosage: NI
  3. VASTAREL ^SERVIER^ [Concomitant]
  4. PLAVIX [Concomitant]
  5. MONICOR L.P. [Concomitant]

REACTIONS (1)
  - ELECTROCARDIOGRAM QT PROLONGED [None]
